FAERS Safety Report 5331818-9 (Version None)
Quarter: 2007Q2

REPORT INFORMATION
  Report Type: 
  Country: None (occurrence: None)
  Receive Date: 20070518
  Receipt Date: 20070511
  Transmission Date: 20071010
  Serious: Yes (Other)
  Sender: FDA-Public Use
  Company Number: 6033297

PATIENT
  Age: 81 Year

DRUGS (7)
  1. CARDENSIEL 1.25 MG (TABLET) (BISOPROLOL FUMARATE) [Suspect]
     Indication: CARDIAC FAILURE
     Dosage: 2,5 (1,25 MG, 2 IN 1 D) ORAL
     Route: 048
     Dates: start: 20061201
  2. NOVONORM (TABLET) (REPAGLINIDE) [Concomitant]
  3. INSULIN (SOLUTION FOR INJECTION)  (INSULIN) [Concomitant]
  4. TRIATEC (TABLET) (RAMIPRIL) [Concomitant]
  5. INEGY (TABLET) (SIMVASTATIN, EZETIMIBE) [Concomitant]
  6. ASPEGIC 1000 [Concomitant]
  7. FUROSEMIDE [Concomitant]

REACTIONS (1)
  - AORTIC ANEURYSM [None]
